FAERS Safety Report 8509814-X (Version None)
Quarter: 2012Q3

REPORT INFORMATION
  Report Type: 
  Country: None (occurrence: None)
  Receive Date: 20120713
  Receipt Date: 20120703
  Transmission Date: 20120928
  Serious: Yes (Hospitalization)
  Sender: FDA-Public Use
  Company Number: AU-ALLERGAN-1209249US

PATIENT
  Sex: Male

DRUGS (1)
  1. ACULAR [Suspect]
     Indication: PRODUCT USED FOR UNKNOWN INDICATION
     Dosage: 1 GTT, QAM
     Route: 047
     Dates: start: 20120509, end: 20120501

REACTIONS (3)
  - VISUAL IMPAIRMENT [None]
  - EYE INFECTION [None]
  - PAIN [None]
